FAERS Safety Report 5468518-0 (Version None)
Quarter: 2007Q3

REPORT INFORMATION
  Report Type: 
  Country: None (occurrence: None)
  Receive Date: 20070926
  Receipt Date: 20070809
  Transmission Date: 20080115
  Serious: No
  Sender: FDA-Public Use
  Company Number: US-BRISTOL-MYERS SQUIBB COMPANY-13873252

PATIENT
  Age: 38 Year
  Sex: Female
  Weight: 63 kg

DRUGS (6)
  1. ORENCIA [Suspect]
     Indication: RHEUMATOID ARTHRITIS
     Route: 042
     Dates: start: 20070505
  2. METHOTREXATE [Concomitant]
     Route: 030
  3. PREDNISONE [Concomitant]
  4. ULTRAM [Concomitant]
  5. MULTI-VITAMIN [Concomitant]
  6. ZOLOFT [Concomitant]

REACTIONS (3)
  - DRUG INEFFECTIVE [None]
  - IMPAIRED WORK ABILITY [None]
  - SLEEP DISORDER [None]
